FAERS Safety Report 12713351 (Version 1)
Quarter: 2016Q3

REPORT INFORMATION
  Report Type: Spontaneous
  Country: RU (occurrence: RU)
  Receive Date: 20160902
  Receipt Date: 20160902
  Transmission Date: 20161109
  Serious: Yes (Other)
  Sender: FDA-Public Use
  Company Number: RU-ASTRAZENECA-2016SE93328

PATIENT
  Age: 70 Year
  Sex: Female
  Weight: 90 kg

DRUGS (8)
  1. LOZAP [Concomitant]
     Active Substance: LOSARTAN
  2. NOLPAZA [Concomitant]
     Active Substance: PANTOPRAZOLE SODIUM
  3. ALLOPURINOL. [Concomitant]
     Active Substance: ALLOPURINOL
  4. ATORVASTATIN [Suspect]
     Active Substance: ATORVASTATIN
     Route: 065
  5. IVABRADINE [Concomitant]
     Active Substance: IVABRADINE
  6. KETOSTERIL [Concomitant]
     Active Substance: AMINO ACIDS
  7. BRILINTA [Suspect]
     Active Substance: TICAGRELOR
     Indication: STENT PLACEMENT
     Route: 048
     Dates: start: 201604
  8. BRILINTA [Suspect]
     Active Substance: TICAGRELOR
     Indication: MYOCARDIAL INFARCTION
     Route: 048
     Dates: start: 201604

REACTIONS (4)
  - Hallucination [Recovered/Resolved]
  - Irritability [Recovered/Resolved]
  - Sleep disorder [Recovered/Resolved]
  - Dyspnoea [Not Recovered/Not Resolved]

NARRATIVE: CASE EVENT DATE: 201604
